FAERS Safety Report 16292313 (Version 1)
Quarter: 2019Q2

REPORT INFORMATION
  Report Type: Report from Study
  Country: US (occurrence: US)
  Receive Date: 20190509
  Receipt Date: 20190509
  Transmission Date: 20190711
  Serious: Yes (Hospitalization, Other)
  Sender: FDA-Public Use
  Company Number: US-BAYER-2019-090016

PATIENT
  Sex: Female

DRUGS (3)
  1. APAP [Suspect]
     Active Substance: ACETAMINOPHEN
  2. OXYCODONE [Suspect]
     Active Substance: OXYCODONE
     Indication: ABDOMINAL PAIN
  3. CYCLOBENZAPRINE. [Suspect]
     Active Substance: CYCLOBENZAPRINE
     Indication: ABDOMINAL PAIN

REACTIONS (7)
  - Respiratory depression [None]
  - Left ventricular dysfunction [None]
  - Hypoxia [None]
  - Ischaemic hepatitis [None]
  - Renal tubular necrosis [None]
  - Rhabdomyolysis [None]
  - Shock [None]
